FAERS Safety Report 10376059 (Version 1)
Quarter: 2014Q1

REPORT INFORMATION
  Report Type: Spontaneous
  Country: US (occurrence: None)
  Receive Date: 20140306
  Receipt Date: 20140306
  Transmission Date: 20141002
  Serious: Yes (Hospitalization)
  Sender: FDA-Public Use
  Company Number: 163-21880-13041959

PATIENT
  Age: 76 Year
  Sex: Female
  Weight: 56.7 kg

DRUGS (12)
  1. REVLIMID (LENALIDOMIDE) (25 MILLIGRAM, CAPSULES) [Suspect]
     Indication: PLASMA CELL MYELOMA
     Route: 048
     Dates: start: 20110329
  2. BABY ASPIRIN(ACETYLSALICYLIC ACID) [Concomitant]
  3. CALCIUM CITRATE(CALCIUM CITRATE) [Concomitant]
  4. FOLIC ACID(FOLIC ACID) [Concomitant]
  5. MULTIVITAMINS(MULTIVITAMINS) [Concomitant]
  6. OMEPRAZOLE(OMEPRAZOLE) [Concomitant]
  7. SUDAFED(PSEUDOEPHEDRINE HYDROCHLORIDE) [Concomitant]
  8. TYLENOL(PARACETAMOL) [Concomitant]
  9. VALTREX(VALACICLOVIR HYDROCHLORIDE) [Concomitant]
  10. ZOMETA(ZOLEDRONIC ACID) [Concomitant]
  11. BENADRYL(DIPHENHYDRAMINE HYDROCHLORIDE) [Concomitant]
  12. DECADRON(DEXAMETHASONE) [Concomitant]

REACTIONS (1)
  - Pneumonia [None]
